FAERS Safety Report 8772780 (Version 2)
Quarter: 2013Q4

REPORT INFORMATION
  Report Type: Spontaneous
  Country: FR (occurrence: FR)
  Receive Date: 20120907
  Receipt Date: 20131105
  Transmission Date: 20140711
  Serious: Yes (Hospitalization)
  Sender: FDA-Public Use
  Company Number: FR-009507513-1208FRA011776

PATIENT
  Age: 78 Year
  Sex: Male

DRUGS (8)
  1. SINEMET L.P. [Suspect]
     Dosage: 200 MG, TID
     Route: 048
  2. VEMURAFENIB [Suspect]
     Indication: METASTATIC MALIGNANT MELANOMA
     Dosage: 720 MG, BID
     Route: 048
     Dates: start: 20120202, end: 20120302
  3. MODOPAR [Suspect]
     Dosage: 6 DF, QD
     Route: 048
  4. MANTADIX [Suspect]
     Dosage: 100 MG, BID
     Route: 048
  5. REQUIP LP [Suspect]
     Dosage: 8 MG, QD
     Route: 048
  6. POLYETHYLENE GLYCOL [Concomitant]
     Route: 048
  7. COMTAN [Concomitant]
     Route: 048
  8. FLUTAMIDE [Concomitant]
     Route: 048

REACTIONS (2)
  - Confusional state [Unknown]
  - Extrapyramidal disorder [Unknown]
